FAERS Safety Report 7800096-0 (Version None)
Quarter: 2011Q4

REPORT INFORMATION
  Report Type: 
  Country: None (occurrence: None)
  Receive Date: 20111006
  Receipt Date: 20110928
  Transmission Date: 20120403
  Serious: Yes (Other)
  Sender: FDA-Public Use
  Company Number: US-JNJFOC-20110911792

PATIENT
  Age: 67 Year
  Sex: Female

DRUGS (10)
  1. STELARA [Suspect]
     Indication: PSORIASIS
     Route: 058
     Dates: start: 20110411
  2. STELARA [Suspect]
     Route: 058
     Dates: start: 20091101, end: 20110101
  3. NORVASC [Concomitant]
     Indication: HYPERTENSION
  4. METHOTREXATE [Concomitant]
     Indication: RHEUMATOID ARTHRITIS
  5. FISH OIL [Concomitant]
  6. FOLIC ACID [Concomitant]
  7. PREDNISONE [Concomitant]
     Indication: RHEUMATOID ARTHRITIS
  8. POTASSIUM [Concomitant]
  9. ASPIRIN [Concomitant]
  10. RECLAST [Concomitant]

REACTIONS (1)
  - PEMPHIGOID [None]
